FAERS Safety Report 4398122-7 (Version None)
Quarter: 2004Q3

REPORT INFORMATION
  Report Type: 
  Country: None (occurrence: None)
  Receive Date: 20040713
  Receipt Date: 20040630
  Transmission Date: 20050211
  Serious: Yes (Death)
  Sender: FDA-Public Use
  Company Number: 2004043606

PATIENT

DRUGS (1)
  1. GEODON [Suspect]
     Indication: DEPRESSION
     Dosage: 40 MG (20 MG, 2 IN 1 D)

REACTIONS (3)
  - COMPLETED SUICIDE [None]
  - GENERAL PHYSICAL HEALTH DETERIORATION [None]
  - THERMAL BURN [None]
